FAERS Safety Report 10874803 (Version 1)
Quarter: 2015Q1

REPORT INFORMATION
  Report Type: Spontaneous
  Country: JP (occurrence: JP)
  Receive Date: 20150227
  Receipt Date: 20150227
  Transmission Date: 20150721
  Serious: Yes (Other)
  Sender: FDA-Public Use
  Company Number: JP-PFIZER INC-2015044125

PATIENT
  Age: 85 Year
  Sex: Female

DRUGS (4)
  1. LYRICA [Suspect]
     Active Substance: PREGABALIN
     Indication: SPINAL OSTEOARTHRITIS
     Dosage: 75 MG, 2X/DAY
     Route: 048
  2. LYRICA [Suspect]
     Active Substance: PREGABALIN
     Dosage: 75 MG, 1X/DAY
     Route: 048
  3. LOXONIN [Concomitant]
     Active Substance: LOXOPROFEN SODIUM
     Dosage: 3 DF, DAILY
     Route: 048
  4. LOXONIN [Concomitant]
     Active Substance: LOXOPROFEN SODIUM
     Dosage: 1 DF, DAILY
     Route: 048

REACTIONS (9)
  - C-reactive protein increased [Unknown]
  - Somnolence [Recovered/Resolved]
  - Anaemia [Unknown]
  - Slow speech [Recovered/Resolved]
  - Slow response to stimuli [Unknown]
  - Dysarthria [Unknown]
  - Hypoxia [Unknown]
  - General physical health deterioration [Unknown]
  - Product use issue [Unknown]

NARRATIVE: CASE EVENT DATE: 20150129
